FAERS Safety Report 4371004-2 (Version None)
Quarter: 2004Q2

REPORT INFORMATION
  Report Type: 
  Country: None (occurrence: None)
  Receive Date: 20040601
  Receipt Date: 20040513
  Transmission Date: 20050107
  Serious: Yes (Death, Hospitalization)
  Sender: FDA-Public Use
  Company Number: 206784

PATIENT
  Age: 44 Year
  Sex: Female

DRUGS (2)
  1. HERCEPTIN [Suspect]
     Indication: BREAST CANCER
     Dosage: INTRAVENOUS
     Route: 042
     Dates: start: 20031101, end: 20040220
  2. TAXOTERE [Concomitant]

REACTIONS (3)
  - CARDIAC TAMPONADE [None]
  - MALIGNANT NEOPLASM PROGRESSION [None]
  - PERICARDIAL EFFUSION [None]
